FAERS Safety Report 5084366-8 (Version None)
Quarter: 2006Q3

REPORT INFORMATION
  Report Type: 
  Country: None (occurrence: None)
  Receive Date: 20060817
  Receipt Date: 20060817
  Transmission Date: 20061208
  Serious: No
  Sender: FDA-Public Use
  Company Number: None

PATIENT
  Sex: Male
  Weight: 103.8737 kg

DRUGS (7)
  1. DILTIAZEM [Suspect]
     Indication: HYPERTENSION
     Dosage: 120 MG ONCE DAILY PO
     Route: 048
     Dates: start: 20060404, end: 20060502
  2. ALLOPURINOL [Concomitant]
  3. FLUNISOLIDE [Concomitant]
  4. HCTZ 50/TRIAMTERENE [Concomitant]
  5. LORATADINE [Concomitant]
  6. SIMVASTATIN [Concomitant]
  7. VARDENAFIL [Concomitant]

REACTIONS (2)
  - MUSCLE FATIGUE [None]
  - MYALGIA [None]
